FAERS Safety Report 20685872 (Version 1)
Quarter: 2022Q2

REPORT INFORMATION
  Report Type: Report from Study
  Country: CA (occurrence: CA)
  Receive Date: 20220407
  Receipt Date: 20220407
  Transmission Date: 20220721
  Serious: Yes (Hospitalization)
  Sender: FDA-Public Use
  Company Number: CA-TAKEDA-CA202023201

PATIENT
  Age: 42 Year
  Sex: Female

DRUGS (4)
  1. HUMAN IMMUNOGLOBULIN G [Suspect]
     Active Substance: HUMAN IMMUNOGLOBULIN G
     Indication: Urticaria chronic
     Dosage: 8 GRAM, 1X/WEEK
     Route: 058
     Dates: start: 20200715, end: 20211124
  2. HUMAN IMMUNOGLOBULIN G [Suspect]
     Active Substance: HUMAN IMMUNOGLOBULIN G
     Dosage: 8 GRAM, 1/WEEK
     Route: 065
     Dates: start: 20210715
  3. HUMAN IMMUNOGLOBULIN G [Suspect]
     Active Substance: HUMAN IMMUNOGLOBULIN G
     Dosage: 8 GRAM, 1/WEEK
     Route: 058
     Dates: start: 20200715, end: 2021
  4. ENTYVIO [Concomitant]
     Active Substance: VEDOLIZUMAB

REACTIONS (9)
  - Urticaria [Recovered/Resolved]
  - Stress [Unknown]
  - Anxiety [Unknown]
  - Nervousness [Unknown]
  - Infusion site erythema [Unknown]
  - Intentional product use issue [Unknown]
  - Therapy cessation [Unknown]
  - Hypotension [Not Recovered/Not Resolved]
  - Exploding head syndrome [Unknown]

NARRATIVE: CASE EVENT DATE: 20200715
